FAERS Safety Report 19678433 (Version 2)
Quarter: 2021Q3

REPORT INFORMATION
  Report Type: Spontaneous
  Country: EG (occurrence: EG)
  Receive Date: 20210810
  Receipt Date: 20210818
  Transmission Date: 20211014
  Serious: Yes (Hospitalization, Disabling, Other)
  Sender: FDA-Public Use
  Company Number: EG-NOVOPROD-834955

PATIENT
  Age: 58 Year
  Sex: Male
  Weight: 84 kg

DRUGS (1)
  1. NOVOMIX 30 FLEXPEN [Suspect]
     Active Substance: INSULIN ASPART
     Indication: DIABETES MELLITUS
     Dosage: 40 IU MORNING?20 TO 30 NIGHT IU ? START USE SINCE 5 0R 7 YEARS
     Route: 058

REACTIONS (3)
  - Gangrene [Not Recovered/Not Resolved]
  - Hyperglycaemia [Unknown]
  - Treatment noncompliance [Unknown]

NARRATIVE: CASE EVENT DATE: 20210717
